FAERS Safety Report 10194187 (Version 1)
Quarter: 2014Q2

REPORT INFORMATION
  Report Type: Spontaneous
  Country: US (occurrence: US)
  Receive Date: 20140524
  Receipt Date: 20140524
  Transmission Date: 20141212
  Serious: No
  Sender: FDA-Public Use
  Company Number: US-SANOFI-AVENTIS-2013SA069294

PATIENT
  Sex: Female

DRUGS (1)
  1. LANTUS [Suspect]
     Dosage: USED A MODIFIED SLIDING SCALE FOR HER LANTUS DOSE DOSE:10 UNIT(S)
     Route: 051

REACTIONS (2)
  - Injection site pain [Unknown]
  - Blood glucose increased [Unknown]
